FAERS Safety Report 19225078 (Version 1)
Quarter: 2021Q2

REPORT INFORMATION
  Report Type: Spontaneous
  Country: US (occurrence: US)
  Receive Date: 20210505
  Receipt Date: 20210505
  Transmission Date: 20210717
  Serious: No
  Sender: FDA-Public Use
  Company Number: US-ROCHE-2707714

PATIENT
  Sex: Female

DRUGS (1)
  1. ESBRIET [Suspect]
     Active Substance: PIRFENIDONE
     Indication: INTERSTITIAL LUNG DISEASE
     Dosage: 1 TABLET, 3 TIMES A DAY WITH FOOD AT THE SAME TIME EACH DAY
     Route: 048

REACTIONS (2)
  - No adverse event [Unknown]
  - Product dose omission in error [Unknown]
